FAERS Safety Report 8348400-1 (Version None)
Quarter: 2012Q2

REPORT INFORMATION
  Report Type: 
  Country: None (occurrence: None)
  Receive Date: 20120509
  Receipt Date: 20120430
  Transmission Date: 20120825
  Serious: No
  Sender: FDA-Public Use
  Company Number: US-PFIZER INC-2012086542

PATIENT

DRUGS (5)
  1. ZOLPIDEM TARTRATE [Suspect]
     Dosage: UNK
  2. FLAGYL [Suspect]
     Dosage: UNK
  3. PRAVASTATIN SODIUM [Suspect]
     Dosage: UNK
  4. TRAZODONE HYDROCHLORIDE [Suspect]
     Dosage: UNK
  5. HYDROCODONE BITARTRATE [Suspect]
     Dosage: UNK

REACTIONS (1)
  - NO ADVERSE EVENT [None]
